FAERS Safety Report 5835637-6 (Version None)
Quarter: 2008Q3

REPORT INFORMATION
  Report Type: 
  Country: None (occurrence: None)
  Receive Date: 20080806
  Receipt Date: 20080805
  Transmission Date: 20090109
  Serious: Yes (Hospitalization, Other)
  Sender: FDA-Public Use
  Company Number: GB-BRISTOL-MYERS SQUIBB COMPANY-14233688

PATIENT
  Age: 58 Year
  Sex: Female

DRUGS (4)
  1. ABILIFY [Suspect]
     Indication: SCHIZOPHRENIA
     Dosage: INCREASED TO 10MG AND THEN 15MG WITHIN A SPAN OF ONE MONTH;
     Route: 048
     Dates: start: 20070510, end: 20070518
  2. ABILIFY [Suspect]
     Indication: HALLUCINATION, AUDITORY
     Dosage: INCREASED TO 10MG AND THEN 15MG WITHIN A SPAN OF ONE MONTH;
     Route: 048
     Dates: start: 20070510, end: 20070518
  3. FLUOXETINE [Concomitant]
     Indication: DEPRESSION
     Dosage: DOSE INCREASED TO 40MG FROM 19JUL07 TO 12OCT07
     Route: 048
     Dates: start: 20060309, end: 20071012
  4. DULOXETINE HCL [Concomitant]
     Indication: DEPRESSION
     Dosage: 60 MG DAILY FROM 18-OCT-2007 TO PRESENT.
     Route: 048
     Dates: start: 20071012, end: 20071018

REACTIONS (3)
  - DRUG INEFFECTIVE [None]
  - HALLUCINATION, VISUAL [None]
  - MEMORY IMPAIRMENT [None]
